FAERS Safety Report 5809546-2 (Version None)
Quarter: 2008Q3

REPORT INFORMATION
  Report Type: 
  Country: None (occurrence: None)
  Receive Date: 20080707
  Receipt Date: 20070910
  Transmission Date: 20090109
  Serious: Yes (Other)
  Sender: FDA-Public Use
  Company Number: 517166

PATIENT
  Age: 58 Year
  Sex: Female

DRUGS (2)
  1. MYCOPHENOLATE MOFETIL [Suspect]
     Indication: PEMPHIGUS
     Dosage: 500 MG 2 PER DAY
  2. PREDNISONE TAB [Suspect]
     Indication: PEMPHIGUS
     Dosage: 20 MG

REACTIONS (1)
  - ANAEMIA [None]
